FAERS Safety Report 7515778-8 (Version None)
Quarter: 2011Q2

REPORT INFORMATION
  Report Type: 
  Country: None (occurrence: None)
  Receive Date: 20110425
  Receipt Date: 20101026
  Transmission Date: 20111010
  Serious: Yes (Death)
  Sender: FDA-Public Use
  Company Number: MC201000323

PATIENT
  Age: 85 Year
  Sex: Female

DRUGS (2)
  1. ANGIOMAX [Suspect]
     Indication: CAROTID ARTERY STENT INSERTION
     Dosage: 0.75 MG/KG, BOLUS, INTRAVENOUS; 1.75 MG/KG, HR, INTRAVENOUS
     Route: 042
     Dates: start: 20100901, end: 20100901
  2. ANGIOMAX [Suspect]
     Indication: CAROTID ARTERY STENT INSERTION
     Dosage: 0.75 MG/KG, BOLUS, INTRAVENOUS; 1.75 MG/KG, HR, INTRAVENOUS
     Route: 042
     Dates: start: 20100901

REACTIONS (2)
  - HAEMORRHAGE INTRACRANIAL [None]
  - OFF LABEL USE [None]
